FAERS Safety Report 5970354-3 (Version None)
Quarter: 2008Q4

REPORT INFORMATION
  Report Type: 
  Country: None (occurrence: None)
  Receive Date: 20081126
  Receipt Date: 20081117
  Transmission Date: 20090506
  Serious: Yes (Other)
  Sender: FDA-Public Use
  Company Number: US-PFIZER INC-2008098630

PATIENT
  Sex: Female
  Weight: 113.4 kg

DRUGS (15)
  1. LYRICA [Suspect]
     Indication: FIBROMYALGIA
     Dates: start: 20080101
  2. AROMASIN [Suspect]
     Indication: BREAST CANCER
     Dates: start: 20080601
  3. CYMBALTA [Suspect]
     Indication: FIBROMYALGIA
     Dates: start: 20080601
  4. PAXIL [Suspect]
     Indication: PAIN
  5. TOPAMAX [Suspect]
     Indication: FIBROMYALGIA
  6. ANASTROZOLE [Concomitant]
     Dates: end: 20080701
  7. SEROQUEL [Concomitant]
  8. FUROSEMIDE [Concomitant]
  9. DARVOCET-N 100 [Concomitant]
  10. METOPROLOL TARTRATE [Concomitant]
     Dosage: DAILY DOSE:25MG
  11. MELOXICAM [Concomitant]
     Dosage: DAILY DOSE:15MG
  12. KLOR-CON [Concomitant]
  13. SENOKOT [Concomitant]
  14. COLACE [Concomitant]
  15. PRUNE [Concomitant]

REACTIONS (23)
  - ARTHRITIS [None]
  - BITE [None]
  - CONDITION AGGRAVATED [None]
  - CONSTIPATION [None]
  - DRUG DEPENDENCE [None]
  - FIBROMYALGIA [None]
  - HAIR GROWTH ABNORMAL [None]
  - HALLUCINATION [None]
  - HIRSUTISM [None]
  - HYPOAESTHESIA [None]
  - HYPOAESTHESIA ORAL [None]
  - INFECTION [None]
  - INSOMNIA [None]
  - MALAISE [None]
  - ORAL PAIN [None]
  - OVERDOSE [None]
  - RECTOCELE REPAIR [None]
  - ROTATOR CUFF SYNDROME [None]
  - STOMATITIS [None]
  - TINNITUS [None]
  - UNEVALUABLE EVENT [None]
  - UTERINE PROLAPSE [None]
  - WEIGHT DECREASED [None]
